FAERS Safety Report 5642614-7 (Version None)
Quarter: 2008Q1

REPORT INFORMATION
  Report Type: 
  Country: None (occurrence: None)
  Receive Date: 20080227
  Receipt Date: 20080227
  Transmission Date: 20080703
  Serious: Yes (Hospitalization)
  Sender: FDA-Public Use
  Company Number: None

PATIENT
  Sex: Female

DRUGS (11)
  1. LANTUS [Suspect]
     Indication: DIABETES MELLITUS
     Dosage: (THERAPY DATES: PRIOR TO ER VISIT)
  2. NOVOLOG [Suspect]
     Indication: DIABETES MELLITUS
     Dosage: (THERAPY DATES: PRIOR TO ER VISIT)
  3. PHOSLO [Concomitant]
  4. LABETALOL HCL [Concomitant]
  5. COZAAR [Concomitant]
  6. LISINOPRIL [Concomitant]
  7. LASIX [Concomitant]
  8. NIFEDIPINE [Concomitant]
  9. CLONIDINE [Concomitant]
  10. MINOXIDIL [Concomitant]
  11. SENISPAR [Concomitant]

REACTIONS (6)
  - CONFUSIONAL STATE [None]
  - CRYING [None]
  - EYE SWELLING [None]
  - FALL [None]
  - HAEMATOMA [None]
  - HEAD INJURY [None]
